FAERS Safety Report 5196189-X (Version None)
Quarter: 2006Q4

REPORT INFORMATION
  Report Type: 
  Country: None (occurrence: None)
  Receive Date: 20061222
  Receipt Date: 20061213
  Transmission Date: 20070319
  Serious: Yes (Hospitalization, Other)
  Sender: FDA-Public Use
  Company Number: DEWYE270318OCT06

PATIENT
  Age: 27 Year
  Sex: Female

DRUGS (1)
  1. VENLAFAXINE HCL [Suspect]
     Indication: DEPRESSION
     Dosage: 37.5 MG 3X PER 1 DAY
     Route: 048

REACTIONS (2)
  - HAEMATOMA [None]
  - RHABDOMYOLYSIS [None]
